FAERS Safety Report 9968852 (Version 1)
Quarter: 2014Q1

REPORT INFORMATION
  Report Type: Report from Study
  Country: US (occurrence: US)
  Receive Date: 20140306
  Receipt Date: 20140306
  Transmission Date: 20141002
  Serious: No
  Sender: FDA-Public Use
  Company Number: US-ABBVIE-13P-163-1142746-00

PATIENT
  Age: 35 Year
  Sex: Male

DRUGS (6)
  1. HUMIRA [Suspect]
     Indication: CROHN^S DISEASE
     Dosage: STARTING DOSE
     Dates: start: 20130827
  2. PENTASA [Concomitant]
     Indication: CROHN^S DISEASE
  3. ZOLOFT [Concomitant]
     Indication: DEPRESSION
     Dosage: 150 MG DAILY
  4. PREVACID [Concomitant]
     Indication: GASTROOESOPHAGEAL REFLUX DISEASE
     Dosage: DAILY
  5. CLARITIN [Concomitant]
     Indication: HYPERSENSITIVITY
     Dosage: 10 MG DAILY
  6. VITAMIN D [Concomitant]
     Indication: PROPHYLAXIS
     Dosage: DAILY

REACTIONS (2)
  - Fatigue [Recovering/Resolving]
  - Crohn^s disease [Unknown]
